FAERS Safety Report 7026724-8 (Version None)
Quarter: 2010Q4

REPORT INFORMATION
  Report Type: 
  Country: None (occurrence: None)
  Receive Date: 20101004
  Receipt Date: 20100927
  Transmission Date: 20110411
  Serious: Yes (Death, Life-Threatening, Hospitalization)
  Sender: FDA-Public Use
  Company Number: US-ROCHE-718183

PATIENT
  Sex: Male
  Weight: 131.4 kg

DRUGS (2)
  1. AVASTIN [Suspect]
     Indication: GLIOBLASTOMA MULTIFORME
     Route: 042
     Dates: start: 20100512, end: 20100607
  2. LOVENOX [Concomitant]

REACTIONS (4)
  - ABDOMINAL PAIN UPPER [None]
  - CONVULSION [None]
  - IMPAIRED HEALING [None]
  - INTESTINAL PERFORATION [None]
